FAERS Safety Report 13255546 (Version 7)
Quarter: 2022Q1

REPORT INFORMATION
  Report Type: Report from Study
  Country: PA (occurrence: PA)
  Receive Date: 20170221
  Receipt Date: 20220303
  Transmission Date: 20220423
  Serious: Yes (Other)
  Sender: FDA-Public Use
  Company Number: PHHY2017PA006264

PATIENT
  Sex: Female
  Weight: 65.76 kg

DRUGS (11)
  1. GILENYA [Suspect]
     Active Substance: FINGOLIMOD HYDROCHLORIDE
     Indication: Multiple sclerosis
     Dosage: 0.5 MG, QD
     Route: 048
     Dates: start: 2015
  2. GILENYA [Suspect]
     Active Substance: FINGOLIMOD HYDROCHLORIDE
     Dosage: 0.5 MG, QOD
     Route: 048
  3. GILENYA [Suspect]
     Active Substance: FINGOLIMOD HYDROCHLORIDE
     Dosage: 0.5 MG, QD
     Route: 048
     Dates: start: 20150729
  4. GABAPENTIN [Concomitant]
     Active Substance: GABAPENTIN
     Indication: Product used for unknown indication
     Dosage: UNK
     Route: 065
  5. RIVOTRIL [Concomitant]
     Active Substance: CLONAZEPAM
     Indication: Product used for unknown indication
     Dosage: 1 DOSAGE FORM  AT NIGHT
     Route: 048
  6. TONALGEN [Concomitant]
     Indication: Product used for unknown indication
     Dosage: UNK
     Route: 065
  7. ESCITALOPRAM [Concomitant]
     Active Substance: ESCITALOPRAM OXALATE
     Indication: Product used for unknown indication
     Dosage: UNK
     Route: 065
  8. ASCORBIC ACID [Concomitant]
     Active Substance: ASCORBIC ACID
     Indication: Product used for unknown indication
     Dosage: UNK
     Route: 065
  9. KETAMINE [Concomitant]
     Active Substance: KETAMINE
     Indication: Product used for unknown indication
     Dosage: UNK
     Route: 065
  10. LISINOPRIL [Concomitant]
     Active Substance: LISINOPRIL
     Indication: Product used for unknown indication
     Dosage: UNK
     Route: 065
  11. PREGABALIN [Concomitant]
     Active Substance: PREGABALIN
     Indication: Product used for unknown indication
     Dosage: 150 MG, BID (1 IN THE MORNING AND 1 IN THE NIGHT)
     Route: 048

REACTIONS (42)
  - Cerebral atrophy [Unknown]
  - Hyporeflexia [Not Recovered/Not Resolved]
  - Bone disorder [Not Recovered/Not Resolved]
  - Arthritis [Not Recovered/Not Resolved]
  - Spinal stenosis [Not Recovered/Not Resolved]
  - Multiple sclerosis relapse [Recovered/Resolved]
  - Headache [Unknown]
  - Hypoaesthesia [Unknown]
  - Fatigue [Unknown]
  - Balance disorder [Unknown]
  - Multiple sclerosis [Unknown]
  - Central nervous system lesion [Unknown]
  - Syncope [Unknown]
  - Bradycardia [Unknown]
  - Muscular weakness [Unknown]
  - Dizziness [Unknown]
  - COVID-19 [Unknown]
  - Myalgia [Unknown]
  - Asthenia [Unknown]
  - Decreased immune responsiveness [Unknown]
  - Malaise [Unknown]
  - Peripheral venous disease [Unknown]
  - Skin ulcer [Unknown]
  - Oedema [Unknown]
  - Anaemia [Unknown]
  - Fibromyalgia [Recovering/Resolving]
  - Pain [Recovering/Resolving]
  - Chest pain [Unknown]
  - Irritable bowel syndrome [Unknown]
  - Dysphonia [Unknown]
  - Discomfort [Unknown]
  - Visual impairment [Unknown]
  - Influenza [Unknown]
  - Influenza [Recovered/Resolved]
  - Nasopharyngitis [Unknown]
  - Cough [Unknown]
  - Pyrexia [Recovered/Resolved]
  - Viral pharyngitis [Recovered/Resolved]
  - Chills [Recovered/Resolved]
  - Hypertension [Unknown]
  - Vision blurred [Unknown]
  - Prescribed underdose [Unknown]

NARRATIVE: CASE EVENT DATE: 20170101
